FAERS Safety Report 19508851 (Version 1)
Quarter: 2021Q3

REPORT INFORMATION
  Report Type: Spontaneous
  Country: US (occurrence: US)
  Receive Date: 20210708
  Receipt Date: 20210708
  Transmission Date: 20211014
  Serious: No
  Sender: FDA-Public Use
  Company Number: NVSC2021US145975

PATIENT
  Sex: Female

DRUGS (1)
  1. ZOFRAN [Suspect]
     Active Substance: ONDANSETRON HYDROCHLORIDE
     Indication: PRODUCT USED FOR UNKNOWN INDICATION
     Dosage: UNK
     Route: 065

REACTIONS (7)
  - White blood cell disorder [Unknown]
  - Stomatitis [Unknown]
  - Burning sensation [Unknown]
  - Fatigue [Unknown]
  - Red blood cell abnormality [Unknown]
  - Increased appetite [Unknown]
  - Skin discolouration [Unknown]
